FAERS Safety Report 14023930 (Version 1)
Quarter: 2017Q3

REPORT INFORMATION
  Report Type: Spontaneous
  Country: US (occurrence: US)
  Receive Date: 20170928
  Receipt Date: 20170928
  Transmission Date: 20171128
  Serious: No
  Sender: FDA-Public Use
  Company Number: US-SA-2016SA227532

PATIENT
  Sex: Female

DRUGS (30)
  1. CLONAZEPAM. [Concomitant]
     Active Substance: CLONAZEPAM
  2. ESTRACE [Concomitant]
     Active Substance: ESTRADIOL
  3. HYDROCODONE [Concomitant]
     Active Substance: HYDROCODONE
  4. MELOXICAM. [Concomitant]
     Active Substance: MELOXICAM
  5. BENADRYL [Concomitant]
     Active Substance: DIPHENHYDRAMINE HYDROCHLORIDE
  6. VITAMIN B COMPLEX [Concomitant]
     Active Substance: CYANOCOBALAMIN\DEXPANTHENOL\NIACINAMIDE\PYRIDOXINE HYDROCHLORIDE\RIBOFLAVIN 5^-PHOSPHATE SODIUM\THIAMINE HYDROCHLORIDE\VITAMIN B COMPLEX
  7. ZINC. [Concomitant]
     Active Substance: ZINC
  8. DEPLIN [Concomitant]
     Active Substance: LEVOMEFOLATE CALCIUM
  9. FISH OIL [Concomitant]
     Active Substance: FISH OIL
  10. FUROSEMIDE. [Concomitant]
     Active Substance: FUROSEMIDE
  11. TIZANIDINE. [Concomitant]
     Active Substance: TIZANIDINE
  12. VITAMIN D3 [Concomitant]
     Active Substance: CHOLECALCIFEROL
  13. BIOTIN [Concomitant]
     Active Substance: BIOTIN
  14. METOCLOPRAMIDE. [Concomitant]
     Active Substance: METOCLOPRAMIDE
  15. MIRTAZAPINE. [Concomitant]
     Active Substance: MIRTAZAPINE
  16. AUBAGIO [Suspect]
     Active Substance: TERIFLUNOMIDE
     Indication: MULTIPLE SCLEROSIS
     Route: 048
     Dates: start: 20161112, end: 20161203
  17. ASPIRIN. [Concomitant]
     Active Substance: ASPIRIN
  18. CLIMARA [Concomitant]
     Active Substance: ESTRADIOL
  19. PRILOSEC [Concomitant]
     Active Substance: OMEPRAZOLE MAGNESIUM
  20. SEROQUEL [Concomitant]
     Active Substance: QUETIAPINE FUMARATE
  21. VITAMIN B12 [Concomitant]
     Active Substance: CYANOCOBALAMIN
  22. AMANTADINE. [Concomitant]
     Active Substance: AMANTADINE HYDROCHLORIDE
  23. CASCARA SAGRADA [Concomitant]
     Active Substance: FRANGULA PURSHIANA BARK
  24. LEVOTHYROXINE. [Concomitant]
     Active Substance: LEVOTHYROXINE
  25. ONDANSETRON [Concomitant]
     Active Substance: ONDANSETRON
  26. CALCIUM [Concomitant]
     Active Substance: CALCIUM
  27. VENTOLIN [Concomitant]
     Active Substance: ALBUTEROL SULFATE
  28. CARISOPRODOL. [Concomitant]
     Active Substance: CARISOPRODOL
  29. FLUOXETINE [Concomitant]
     Active Substance: FLUOXETINE HYDROCHLORIDE
  30. POTASSIUM CHLORIDE. [Concomitant]
     Active Substance: POTASSIUM CHLORIDE

REACTIONS (1)
  - Blood pressure increased [Recovered/Resolved]
